FAERS Safety Report 9514286 (Version 5)
Quarter: 2016Q3

REPORT INFORMATION
  Report Type: Report from Study
  Country: US (occurrence: US)
  Receive Date: 20130910
  Receipt Date: 20160922
  Transmission Date: 20161109
  Serious: Yes (Hospitalization)
  Sender: FDA-Public Use
  Company Number: US-SANOFI-AVENTIS-2013SA089285

PATIENT
  Age: 63 Year
  Sex: Female
  Weight: 76 kg

DRUGS (10)
  1. AUBAGIO [Suspect]
     Active Substance: TERIFLUNOMIDE
     Indication: MULTIPLE SCLEROSIS
     Route: 048
  2. BUTORPHANOL [Concomitant]
     Active Substance: BUTORPHANOL
     Dosage: 10MG/ML 1 SPRAY EVERY 8HRS
  3. NEXIUM [Concomitant]
     Active Substance: ESOMEPRAZOLE MAGNESIUM
     Route: 065
  4. HYDROCHLOROTHIAZIDE/SPIRONOLACTONE [Concomitant]
     Dosage: 25-25 MG
  5. CYCLOBENZAPRINE [Concomitant]
     Active Substance: CYCLOBENZAPRINE
     Route: 065
  6. HYDROCODONE [Concomitant]
     Active Substance: HYDROCODONE
     Dosage: 7.5-500 MG 3 TIMES A DAY.
  7. AUBAGIO [Suspect]
     Active Substance: TERIFLUNOMIDE
     Indication: MULTIPLE SCLEROSIS
     Route: 048
     Dates: start: 20130611
  8. MODAFINIL. [Concomitant]
     Active Substance: MODAFINIL
     Route: 065
  9. TIZANIDINE. [Concomitant]
     Active Substance: TIZANIDINE
  10. TRAZODONE [Concomitant]
     Active Substance: TRAZODONE HYDROCHLORIDE

REACTIONS (9)
  - Paraesthesia [Recovered/Resolved]
  - Burning sensation [Recovered/Resolved]
  - Sinus disorder [Unknown]
  - Muscular weakness [Unknown]
  - Herpes zoster [Unknown]
  - Bronchitis [Unknown]
  - Neuralgia [Unknown]
  - Cough [Not Recovered/Not Resolved]
  - Alopecia [Unknown]

NARRATIVE: CASE EVENT DATE: 2013
